FAERS Safety Report 21101017 (Version 4)
Quarter: 2022Q3

REPORT INFORMATION
  Report Type: Report from Study
  Country: IL (occurrence: None)
  Receive Date: 20220719
  Receipt Date: 20220824
  Transmission Date: 20221027
  Serious: Yes (Hospitalization)
  Sender: FDA-Public Use
  Company Number: IL-ROCHE-3136131

PATIENT
  Age: 77 Year
  Sex: Male
  Weight: 93 kg

DRUGS (9)
  1. BISOPROLOL FUMARATE [Concomitant]
     Active Substance: BISOPROLOL FUMARATE
     Indication: Hypertension
     Route: 048
     Dates: start: 20141002
  2. ASPIRIN [Concomitant]
     Active Substance: ASPIRIN
     Indication: Myocardial ischaemia
     Route: 048
     Dates: start: 20161115
  3. CITALOPRAM [Concomitant]
     Active Substance: CITALOPRAM HYDROBROMIDE
     Indication: Depression
     Route: 048
     Dates: start: 2019
  4. RAMIPRIL [Concomitant]
     Active Substance: RAMIPRIL
     Indication: Hypertension
     Route: 048
     Dates: start: 20141002
  5. ROSUVASTATIN [Concomitant]
     Active Substance: ROSUVASTATIN
     Indication: Hyperlipidaemia
     Route: 048
     Dates: start: 2016
  6. METAMIZOLE [Concomitant]
     Active Substance: METAMIZOLE
     Indication: Spinal stenosis
     Dosage: 1 TABLET
     Route: 048
     Dates: start: 2011
  7. VITAMIN D3 [Concomitant]
     Active Substance: CHOLECALCIFEROL
     Indication: Vitamin D deficiency
     Route: 048
     Dates: start: 201310
  8. OPTI SAFE MAX [Concomitant]
     Dosage: 1 TABLET
     Route: 048
     Dates: start: 2021
  9. OXYGEN [Concomitant]
     Active Substance: OXYGEN
     Route: 045
     Dates: start: 20211215

REACTIONS (1)
  - Ureterolithiasis [Recovered/Resolved]

NARRATIVE: CASE EVENT DATE: 20220706
